FAERS Safety Report 9293300 (Version 2)
Quarter: 2013Q3

REPORT INFORMATION
  Report Type: Report from Study
  Country: US (occurrence: US)
  Receive Date: 20130516
  Receipt Date: 20130927
  Transmission Date: 20140515
  Serious: Yes (Hospitalization)
  Sender: FDA-Public Use
  Company Number: US-BRISTOL-MYERS SQUIBB COMPANY-18758136

PATIENT
  Age: 71 Year
  Sex: Female
  Weight: 96 kg

DRUGS (1)
  1. IPILIMUMAB [Suspect]
     Indication: MALIGNANT MELANOMA
     Dosage: LAST ADMIN:25MAR2013?TOTAL DOSE:288MG
     Route: 042
     Dates: start: 20130325

REACTIONS (3)
  - Diverticulitis [Unknown]
  - Diarrhoea [Recovered/Resolved with Sequelae]
  - Clostridium difficile colitis [Recovered/Resolved with Sequelae]
